FAERS Safety Report 12990972 (Version 1)
Quarter: 2016Q4

REPORT INFORMATION
  Report Type: Spontaneous
  Country: GB (occurrence: GB)
  Receive Date: 20161201
  Receipt Date: 20161201
  Transmission Date: 20170207
  Serious: Yes (Life-Threatening)
  Sender: FDA-Public Use
  Company Number: GB-FRESENIUS KABI-FK201609271

PATIENT
  Age: 64 Year
  Sex: Male
  Weight: 106 kg

DRUGS (9)
  1. GENTAMICIN. [Suspect]
     Active Substance: GENTAMICIN
     Indication: KNEE ARTHROPLASTY
     Route: 042
     Dates: start: 20161025, end: 20161025
  2. LEVOBUPIVACAINE (MANUFACTURER UNKNOWN) [Suspect]
     Active Substance: LEVOBUPIVACAINE
     Indication: KNEE ARTHROPLASTY
     Route: 058
     Dates: start: 20161025, end: 20161025
  3. PARECOXIB [Suspect]
     Active Substance: PARECOXIB
     Indication: KNEE ARTHROPLASTY
     Route: 042
     Dates: start: 20161025, end: 20161025
  4. SEVOFLURANE. [Suspect]
     Active Substance: SEVOFLURANE
     Indication: KNEE ARTHROPLASTY
     Route: 055
     Dates: start: 20161025, end: 20161025
  5. FENTANYL. [Suspect]
     Active Substance: FENTANYL
     Indication: KNEE ARTHROPLASTY
     Route: 042
     Dates: start: 20161025, end: 20161025
  6. DEXAMETHASONE. [Suspect]
     Active Substance: DEXAMETHASONE
     Indication: KNEE ARTHROPLASTY
     Route: 042
     Dates: start: 20161025, end: 20161025
  7. PROPOFOL (MANUFACTURER UNKNOWN) [Suspect]
     Active Substance: PROPOFOL
     Indication: KNEE ARTHROPLASTY
     Route: 042
     Dates: start: 20161025, end: 20161025
  8. TEICOPLANIN [Suspect]
     Active Substance: TEICOPLANIN
     Indication: KNEE ARTHROPLASTY
     Route: 042
     Dates: start: 20161025, end: 20161025
  9. TRANEXAMIC ACID. [Suspect]
     Active Substance: TRANEXAMIC ACID
     Indication: KNEE ARTHROPLASTY
     Route: 042
     Dates: start: 20161025, end: 20161025

REACTIONS (1)
  - Anaphylactic reaction [Recovered/Resolved]

NARRATIVE: CASE EVENT DATE: 20161025
